FAERS Safety Report 9067419 (Version 1)
Quarter: 2013Q1

REPORT INFORMATION
  Report Type: Spontaneous
  Country: DE (occurrence: DE)
  Receive Date: 20130129
  Receipt Date: 20130129
  Transmission Date: 20140127
  Serious: Yes (Other)
  Sender: FDA-Public Use
  Company Number: DE-BAYER-2013-010355

PATIENT
  Sex: Male

DRUGS (1)
  1. GADOVIST [Suspect]
     Dosage: UNK
     Route: 042

REACTIONS (9)
  - Local swelling [None]
  - Oedema mucosal [None]
  - Dyspnoea [None]
  - Sneezing [None]
  - Hypersensitivity [None]
  - Local swelling [None]
  - Oedema mucosal [None]
  - Dyspnoea [None]
  - Sneezing [None]
